FAERS Safety Report 5929966-5 (Version None)
Quarter: 2008Q4

REPORT INFORMATION
  Report Type: 
  Country: None (occurrence: None)
  Receive Date: 20081024
  Receipt Date: 20081015
  Transmission Date: 20090506
  Serious: Yes (Other)
  Sender: FDA-Public Use
  Company Number: JP-SANOFI-SYNTHELABO-A01200801539

PATIENT
  Sex: Female

DRUGS (10)
  1. ATARAX [Concomitant]
     Indication: DERMATITIS
     Route: 048
     Dates: start: 20070313
  2. TOKI-INSHI [Concomitant]
     Indication: DRUG USE FOR UNKNOWN INDICATION
     Route: 048
     Dates: start: 20060101, end: 20080204
  3. MYSLEE [Suspect]
     Indication: INSOMNIA
     Route: 048
     Dates: start: 20070313, end: 20080101
  4. MYSLEE [Suspect]
     Route: 048
     Dates: start: 20080101, end: 20080205
  5. ZANTAC [Concomitant]
     Indication: GASTRIC ULCER
     Route: 048
     Dates: start: 20060101, end: 20080205
  6. TRANSAMIN [Concomitant]
     Indication: DERMATITIS
     Route: 048
     Dates: start: 20060101, end: 20080204
  7. FAMOTIDINE [Concomitant]
     Indication: GASTRITIS
     Route: 048
     Dates: start: 20080202
  8. ALLEGRA [Concomitant]
     Indication: RASH
     Route: 048
     Dates: start: 20070301, end: 20080318
  9. ALLELOCK [Concomitant]
     Indication: DERMATITIS
     Route: 048
     Dates: start: 20080204, end: 20080318
  10. POLARAMINE [Concomitant]
     Indication: DRUG USE FOR UNKNOWN INDICATION
     Route: 048
     Dates: end: 20080226

REACTIONS (1)
  - ERYTHEMA MULTIFORME [None]
